FAERS Safety Report 24895791 (Version 1)
Quarter: 2025Q1

REPORT INFORMATION
  Report Type: Spontaneous
  Country: US (occurrence: None)
  Receive Date: 20250128
  Receipt Date: 20250128
  Transmission Date: 20250409
  Serious: Yes (Other)
  Sender: FDA-CTU
  Company Number: None

PATIENT
  Age: 11 Year
  Sex: Male
  Weight: 33.75 kg

DRUGS (3)
  1. XOFLUZA [Suspect]
     Active Substance: BALOXAVIR MARBOXIL
     Indication: Influenza
     Route: 048
     Dates: start: 20250127, end: 20250127
  2. ALBUTEROL [Concomitant]
     Active Substance: ALBUTEROL
  3. chewable childrens Tylenol [Concomitant]

REACTIONS (6)
  - Hallucination [None]
  - Delirium [None]
  - Vision blurred [None]
  - Sensory disturbance [None]
  - Abnormal behaviour [None]
  - Influenza [None]

NARRATIVE: CASE EVENT DATE: 20250127
